FAERS Safety Report 18275001 (Version 1)
Quarter: 2020Q3

REPORT INFORMATION
  Report Type: Spontaneous
  Country: US (occurrence: US)
  Receive Date: 20200916
  Receipt Date: 20200916
  Transmission Date: 20201103
  Serious: No
  Sender: FDA-Public Use
  Company Number: US-PFIZER INC-2020354395

PATIENT
  Age: 37 Year
  Sex: Male

DRUGS (1)
  1. FLUCONAZOLE. [Suspect]
     Active Substance: FLUCONAZOLE
     Dosage: 2 DF, DAILY (2 PILLS PER DAY)

REACTIONS (4)
  - Drug ineffective [Unknown]
  - Product use issue [Unknown]
  - Photosensitivity reaction [Unknown]
  - Off label use [Unknown]
